FAERS Safety Report 18597819 (Version 2)
Quarter: 2020Q4

REPORT INFORMATION
  Report Type: Spontaneous
  Country: US (occurrence: US)
  Receive Date: 20201210
  Receipt Date: 20201217
  Transmission Date: 20210114
  Serious: No
  Sender: FDA-Public Use
  Company Number: US-SA-2020SA353044

PATIENT

DRUGS (1)
  1. LANTUS SOLOSTAR [Suspect]
     Active Substance: INSULIN GLARGINE
     Indication: DIABETES MELLITUS
     Dosage: 41 IU, QD (AT NIGHT)
     Dates: start: 2005

REACTIONS (3)
  - Device operational issue [Unknown]
  - Wrong technique in product usage process [Unknown]
  - Administration site pain [Unknown]
